FAERS Safety Report 16883279 (Version 2)
Quarter: 2019Q4

REPORT INFORMATION
  Report Type: Spontaneous
  Country: US (occurrence: US)
  Receive Date: 20191004
  Receipt Date: 20191129
  Transmission Date: 20200122
  Serious: No
  Sender: FDA-Public Use
  Company Number: US-JNJFOC-20190930903

PATIENT
  Age: 67 Year
  Sex: Female
  Weight: 76.73 kg

DRUGS (2)
  1. WOMENS ROGAINE [Suspect]
     Active Substance: MINOXIDIL
     Indication: ALOPECIA
     Dosage: RECOMMENDED DOSAGE TWICE DAILY UNTIL RECENTLY,
     Route: 061
  2. WOMENS ROGAINE [Suspect]
     Active Substance: MINOXIDIL
     Dosage: WHEN PATIENT SWITCHED TO ONCE DAILY FOR ONE DAY, THEN TWICE DAILY THE NEXT DAY, AND SO FORTH
     Route: 061

REACTIONS (4)
  - Application site erythema [Not Recovered/Not Resolved]
  - Product use in unapproved indication [Unknown]
  - Alopecia [Not Recovered/Not Resolved]
  - Application site inflammation [Not Recovered/Not Resolved]
